FAERS Safety Report 20577956 (Version 1)
Quarter: 2022Q1

REPORT INFORMATION
  Report Type: Spontaneous
  Country: US (occurrence: None)
  Receive Date: 20220309
  Receipt Date: 20220309
  Transmission Date: 20220424
  Serious: No
  Sender: FDA-Public Use
  Company Number: None

PATIENT
  Age: 53 Year
  Sex: Female
  Weight: 81 kg

DRUGS (10)
  1. ZONISAMIDE [Suspect]
     Active Substance: ZONISAMIDE
     Indication: Seizure
     Dosage: DAILY 4 CAPSULES?
     Route: 048
     Dates: start: 20210315
  2. A [Concomitant]
  3. C [Concomitant]
  4. VITAMIN D3 [Concomitant]
     Active Substance: CHOLECALCIFEROL
  5. VITAMINS [Concomitant]
     Active Substance: VITAMINS
  6. ZINC [Concomitant]
     Active Substance: ZINC
  7. QUERECETIN [Concomitant]
  8. JWH-018 [Concomitant]
     Active Substance: JWH-018
  9. UNSPECIFIED INGREDIENT [Concomitant]
     Active Substance: UNSPECIFIED INGREDIENT
  10. GLUTATHIONE [Concomitant]
     Active Substance: GLUTATHIONE

REACTIONS (1)
  - Headache [None]

NARRATIVE: CASE EVENT DATE: 20220122
